FAERS Safety Report 6780409-1 (Version None)
Quarter: 2010Q2

REPORT INFORMATION
  Report Type: 
  Country: None (occurrence: None)
  Receive Date: 20100620
  Receipt Date: 20100611
  Transmission Date: 20101027
  Serious: Yes (Life-Threatening, Hospitalization)
  Sender: FDA-Public Use
  Company Number: US-JNJFOC-20091001945

PATIENT
  Sex: Female
  Weight: 2.72 kg

DRUGS (2)
  1. CONCENTRATED TYLENOL INFANT DROPS [Suspect]
     Indication: BOWEL MOVEMENT IRREGULARITY
     Dosage: EVERY 4 HOURS 5 TIMES MAX IN 24 HOURS
     Route: 048
  2. CONCENTRATED TYLENOL INFANT DROPS [Suspect]
     Indication: JAUNDICE
     Dosage: EVERY 4 HOURS 5 TIMES MAX IN 24 HOURS
     Route: 048

REACTIONS (4)
  - MENINGITIS [None]
  - PRODUCT LABEL ISSUE [None]
  - PRODUCT QUALITY ISSUE [None]
  - TRANSMISSION OF AN INFECTIOUS AGENT VIA A MEDICINAL PRODUCT [None]
